FAERS Safety Report 14244033 (Version 1)
Quarter: 2017Q4

REPORT INFORMATION
  Report Type: Spontaneous
  Country: BR (occurrence: BR)
  Receive Date: 20171201
  Receipt Date: 20171201
  Transmission Date: 20180321
  Serious: Yes (Other)
  Sender: FDA-Public Use
  Company Number: BR-ASTELLAS-2017US049777

PATIENT
  Age: 12 Year
  Sex: Female

DRUGS (1)
  1. TACROLIMUS. [Suspect]
     Active Substance: TACROLIMUS
     Indication: LIVER TRANSPLANT
     Dosage: 1 MG, TWICE DAILY (1 MG IN THE MORNING AND 1 MG IN THE EVENING
     Route: 065

REACTIONS (2)
  - Dystrophic calcification [Unknown]
  - Pigmentation disorder [Unknown]
